FAERS Safety Report 24451298 (Version 1)
Quarter: 2024Q4

REPORT INFORMATION
  Report Type: Spontaneous
  Country: US (occurrence: US)
  Receive Date: 20241017
  Receipt Date: 20241017
  Transmission Date: 20250115
  Serious: No
  Sender: MUNDIPHARMA EDO
  Company Number: US-Mundipharma Research Limited-2163236

PATIENT
  Sex: Male

DRUGS (1)
  1. REZZAYO [Suspect]
     Active Substance: REZAFUNGIN
     Indication: Candida infection

REACTIONS (2)
  - Drug ineffective [Unknown]
  - Intentional dose omission [Unknown]
